FAERS Safety Report 6361802-8 (Version None)
Quarter: 2009Q3

REPORT INFORMATION
  Report Type: 
  Country: None (occurrence: None)
  Receive Date: 20090918
  Receipt Date: 20090911
  Transmission Date: 20100115
  Serious: Yes (Death, Life-Threatening, Hospitalization)
  Sender: FDA-Public Use
  Company Number: FR-AMGEN-QUU364042

PATIENT
  Age: 48 Year
  Sex: Male

DRUGS (2)
  1. NEULASTA [Suspect]
     Indication: CHEMOTHERAPY
     Route: 058
     Dates: start: 20090717
  2. TAXOTERE [Concomitant]
     Route: 042
     Dates: start: 20090716

REACTIONS (4)
  - ARTHRALGIA [None]
  - MYALGIA [None]
  - SEPTIC SHOCK [None]
  - THROMBOCYTOPENIA [None]
